FAERS Safety Report 7592407-9 (Version None)
Quarter: 2011Q3

REPORT INFORMATION
  Report Type: 
  Country: None (occurrence: None)
  Receive Date: 20110706
  Receipt Date: 20110630
  Transmission Date: 20111222
  Serious: Yes (Other)
  Sender: FDA-Public Use
  Company Number: US-AMGEN-QUU271097

PATIENT
  Age: 25 Year
  Sex: Female

DRUGS (4)
  1. ENBREL [Suspect]
     Indication: PSORIASIS
  2. REMICADE [Concomitant]
  3. ADALIMUMAB [Concomitant]
  4. ENBREL [Suspect]
     Indication: PSORIATIC ARTHROPATHY
     Dosage: 50 MG, QWK
     Route: 058
     Dates: start: 20021127, end: 20060101

REACTIONS (11)
  - PSORIASIS [None]
  - VAGINAL INFECTION [None]
  - INJECTION SITE PAIN [None]
  - FOETAL HEART RATE ABNORMAL [None]
  - ADVERSE DRUG REACTION [None]
  - INJECTION SITE HAEMATOMA [None]
  - ABORTION SPONTANEOUS [None]
  - EAR INFECTION [None]
  - INTRA-UTERINE DEATH [None]
  - PAIN [None]
  - INJECTION SITE ERYTHEMA [None]
